FAERS Safety Report 8115463-8 (Version None)
Quarter: 2012Q1

REPORT INFORMATION
  Report Type: 
  Country: None (occurrence: None)
  Receive Date: 20120206
  Receipt Date: 20120123
  Transmission Date: 20120608
  Serious: Yes (Hospitalization)
  Sender: FDA-Public Use
  Company Number: FR-SANOFI-AVENTIS-2012SA004561

PATIENT
  Age: 84 Year
  Sex: Male

DRUGS (3)
  1. CLAFORAN [Suspect]
     Route: 048
     Dates: start: 20111211, end: 20111212
  2. FLAGYL [Suspect]
     Route: 042
     Dates: start: 20111205, end: 20111214
  3. AMOXICILLIN [Suspect]
     Route: 042
     Dates: start: 20111201, end: 20111220

REACTIONS (2)
  - CONDITION AGGRAVATED [None]
  - CONVULSION [None]
